FAERS Safety Report 24155796 (Version 1)
Quarter: 2024Q3

REPORT INFORMATION
  Report Type: Spontaneous
  Country: IT (occurrence: IT)
  Receive Date: 20240731
  Receipt Date: 20240731
  Transmission Date: 20241017
  Serious: Yes (Other)
  Sender: SANDOZ
  Company Number: IT-DOCGEN-2403992

PATIENT
  Age: 64 Year
  Sex: Female

DRUGS (11)
  1. BECLOMETHASONE DIPROPIONATE\FORMOTEROL [Suspect]
     Active Substance: BECLOMETHASONE DIPROPIONATE\FORMOTEROL
     Indication: Chronic rhinosinusitis with nasal polyps
     Dosage: 1 DF, RECEIVED 800/24 ?G/DAY
     Route: 055
  2. FORMOTEROL FUMARATE\MOMETASONE FUROATE [Suspect]
     Active Substance: FORMOTEROL FUMARATE\MOMETASONE FUROATE
     Indication: Chronic rhinosinusitis with nasal polyps
     Dosage: 100UG, QD, SPRAY
     Route: 045
  3. MONTELUKAST SODIUM [Suspect]
     Active Substance: MONTELUKAST SODIUM
     Indication: Eosinophilia
     Dosage: UNK
     Route: 065
  4. METHYLPREDNISOLONE [Suspect]
     Active Substance: METHYLPREDNISOLONE
     Indication: Eosinophilia
     Dosage: 1 G, QD , RECEIVED FOR 3 DAYS
     Route: 042
  5. PREDNISONE [Suspect]
     Active Substance: PREDNISONE
     Indication: Eosinophilia
     Dosage: 25 MG , RECEIVED FOR 7-10 DAYS
     Route: 048
  6. PREDNISONE [Suspect]
     Active Substance: PREDNISONE
     Indication: Chronic rhinosinusitis with nasal polyps
     Dosage: 50 MG
     Route: 048
  7. TIOTROPIUM BROMIDE [Suspect]
     Active Substance: TIOTROPIUM BROMIDE
     Indication: Chronic rhinosinusitis with nasal polyps
     Dosage: 5 MICROGRAM, QD
     Route: 065
  8. DUPILUMAB [Concomitant]
     Active Substance: DUPILUMAB
     Dosage: 300 MILLIGRAM
     Route: 058
  9. DUPILUMAB [Concomitant]
     Active Substance: DUPILUMAB
     Dosage: RECEIVED 600MG, WHICH WAS FOLLOWED BY 300MG SC EVERY 2 WEEKS
     Route: 058
     Dates: start: 20230220
  10. DUPILUMAB [Concomitant]
     Active Substance: DUPILUMAB
     Indication: Chronic rhinosinusitis with nasal polyps
     Dosage: UNK
     Route: 065
  11. ALBUTEROL [Concomitant]
     Active Substance: ALBUTEROL
     Indication: Chronic rhinosinusitis with nasal polyps
     Dosage: 400 MICROGRAM
     Route: 055

REACTIONS (3)
  - Thrombosis [Unknown]
  - Drug ineffective [Unknown]
  - Therapy partial responder [Unknown]
